FAERS Safety Report 4533085-2 (Version None)
Quarter: 2004Q4

REPORT INFORMATION
  Report Type: 
  Country: None (occurrence: None)
  Receive Date: 20041206
  Receipt Date: 20041021
  Transmission Date: 20050328
  Serious: No
  Sender: FDA-Public Use
  Company Number: USA041081811

PATIENT
  Sex: Female

DRUGS (3)
  1. CYMBALTA [Suspect]
     Dates: start: 20041020
  2. TRAZADONE (TRAZODONE) [Concomitant]
  3. SEROQUEL [Concomitant]

REACTIONS (3)
  - DIARRHOEA [None]
  - HOT FLUSH [None]
  - NAUSEA [None]
